FAERS Safety Report 24779598 (Version 1)
Quarter: 2024Q4

REPORT INFORMATION
  Report Type: Spontaneous
  Country: KR (occurrence: KR)
  Receive Date: 20241226
  Receipt Date: 20241226
  Transmission Date: 20250115
  Serious: Yes (Other)
  Sender: BIOCRYST PHARMACEUTICALS
  Company Number: KR-BIOCRYST PHARMACEUTICALS, INC.-2024BCR01372

PATIENT
  Age: 58 Year
  Sex: Female

DRUGS (1)
  1. PERAMIVIR [Suspect]
     Active Substance: PERAMIVIR
     Indication: Influenza
     Dosage: UNK, ONCE
     Route: 042
     Dates: start: 20241220, end: 20241220

REACTIONS (1)
  - Syncope [Not Recovered/Not Resolved]

NARRATIVE: CASE EVENT DATE: 20241220
